FAERS Safety Report 10688061 (Version 2)
Quarter: 2015Q1

REPORT INFORMATION
  Report Type: Spontaneous
  Country: IT (occurrence: IT)
  Receive Date: 20150102
  Receipt Date: 20150116
  Transmission Date: 20150720
  Serious: Yes (Other)
  Sender: FDA-Public Use
  Company Number: IT-BRISTOL-MYERS SQUIBB COMPANY-BMS-2014-003296

PATIENT
  Age: 82 Year
  Sex: Male

DRUGS (8)
  1. AULIN [Concomitant]
     Active Substance: NIMESULIDE
  2. SIMVASTATIN. [Concomitant]
     Active Substance: SIMVASTATIN
  3. CARDIOASPIRIN [Concomitant]
     Active Substance: ASPIRIN
  4. RAMIPRIL. [Concomitant]
     Active Substance: RAMIPRIL
  5. METFORMIN HYDROCHLORIDE. [Suspect]
     Active Substance: METFORMIN HYDROCHLORIDE
     Indication: TYPE 2 DIABETES MELLITUS
     Dosage: 1000 MG, TID
     Route: 048
     Dates: start: 20140101, end: 20141029
  6. NEBIVOLOL [Concomitant]
     Active Substance: NEBIVOLOL
  7. BACTRIM [Concomitant]
     Active Substance: SULFAMETHOXAZOLE\TRIMETHOPRIM
  8. REPAGLINIDE. [Suspect]
     Active Substance: REPAGLINIDE
     Indication: TYPE 2 DIABETES MELLITUS
     Dosage: 0.5 MG, TID
     Route: 048
     Dates: start: 20140101, end: 20141029

REACTIONS (2)
  - Loss of consciousness [Recovering/Resolving]
  - Hypoglycaemia [Recovering/Resolving]

NARRATIVE: CASE EVENT DATE: 20141029
